FAERS Safety Report 22758438 (Version 2)
Quarter: 2023Q4

REPORT INFORMATION
  Report Type: Report from Study
  Country: US (occurrence: US)
  Receive Date: 20230727
  Receipt Date: 20231024
  Transmission Date: 20240110
  Serious: Yes (Hospitalization, Other)
  Sender: FDA-Public Use
  Company Number: US-ABBVIE-5342219

PATIENT
  Sex: Female

DRUGS (1)
  1. HUMIRA [Suspect]
     Active Substance: ADALIMUMAB
     Indication: Colitis ulcerative
     Dosage: FORM STRENGTH: 40 MILLIGRAM, CITRATE FREE
     Route: 058

REACTIONS (6)
  - Cholecystectomy [Unknown]
  - Illness [Unknown]
  - Hip surgery [Unknown]
  - Pulmonary thrombosis [Not Recovered/Not Resolved]
  - Headache [Unknown]
  - Pain [Unknown]
